FAERS Safety Report 24653868 (Version 1)
Quarter: 2024Q4

REPORT INFORMATION
  Report Type: Spontaneous
  Country: CA (occurrence: CA)
  Receive Date: 20241122
  Receipt Date: 20241122
  Transmission Date: 20250115
  Serious: Yes (Other)
  Sender: PFIZER
  Company Number: CA-PFIZER INC-202400304742

PATIENT
  Age: 39 Year
  Sex: Female

DRUGS (25)
  1. SULFASALAZINE [Suspect]
     Active Substance: SULFASALAZINE
     Indication: Polyarthritis
     Dosage: 1000MG IN THE MORNING AND 1000MG IN THE EVENING
     Route: 048
     Dates: start: 20240918, end: 2024
  2. ACETAMINOPHEN [Concomitant]
     Active Substance: ACETAMINOPHEN
     Dosage: 650 MG, AS NEEDED ( EVERY 4 HOURS PRN)
     Route: 048
  3. ASPIRIN [Concomitant]
     Active Substance: ASPIRIN
     Dosage: 81 MG, DAILY
     Route: 048
  4. CALCIUM [Concomitant]
     Active Substance: CALCIUM
     Dosage: 1250 MG, DAILY
     Route: 048
  5. ESCITALOPRAM [Concomitant]
     Active Substance: ESCITALOPRAM OXALATE
     Dosage: 20 MG, DAILY
     Route: 048
  6. FENTANYL [Concomitant]
     Active Substance: FENTANYL
     Dosage: 50 UG PATCH
  7. HYDROCORTISONE [Concomitant]
     Active Substance: HYDROCORTISONE
     Dosage: UNK, VARYING DOSES
     Dates: start: 202408, end: 202410
  8. HYDROCORTISONE [Concomitant]
     Active Substance: HYDROCORTISONE
     Dosage: 20 MG,  15MG PO QAM AND 5MG PO QPM
     Route: 048
  9. HYDROXYCHLOROQUINE [Concomitant]
     Active Substance: HYDROXYCHLOROQUINE
     Dosage: 400 MG, DAILY
     Route: 048
     Dates: start: 202403
  10. LASIX [Concomitant]
     Active Substance: FUROSEMIDE
     Indication: Hypervolaemia
     Dosage: 40 MG, AS NEEDED (G TWO OR THREE TIMES PER WEEK)
  11. OZEMPIC [Concomitant]
     Active Substance: SEMAGLUTIDE
     Dosage: 0.5 MG, WEEKLY
     Route: 058
  12. PREDNISONE [Concomitant]
     Active Substance: PREDNISONE
     Indication: Polyarthritis
     Dosage: 10 MG
     Route: 048
     Dates: start: 202410
  13. PREDNISONE [Concomitant]
     Active Substance: PREDNISONE
     Dosage: 7.5 MG
     Route: 048
     Dates: start: 20241011
  14. PREGABALIN [Concomitant]
     Active Substance: PREGABALIN
     Dosage: 75 MG, DAILY
     Route: 048
  15. RITUXIMAB [Concomitant]
     Active Substance: RITUXIMAB
     Indication: Granulomatosis with polyangiitis
     Dosage: 1 G X 2 DOSES
     Route: 042
     Dates: start: 20230912, end: 20230926
  16. RITUXIMAB [Concomitant]
     Active Substance: RITUXIMAB
     Dosage: 500 MG X 1 DOSE
     Route: 042
     Dates: start: 20240131, end: 20240131
  17. RITUXIMAB [Concomitant]
     Active Substance: RITUXIMAB
     Dosage: 500 MG, EVERY 4 MONTHS
     Route: 042
     Dates: start: 20240531
  18. RITUXIMAB [Concomitant]
     Active Substance: RITUXIMAB
     Dosage: 500 MG, EVERY 4 MONTHS
     Route: 042
     Dates: start: 20240925
  19. SEPTRA [Concomitant]
     Active Substance: SULFAMETHOXAZOLE\TRIMETHOPRIM
     Dosage: 1 DF, EVERY MWF
  20. SEPTRA DS [Concomitant]
     Active Substance: SULFAMETHOXAZOLE\TRIMETHOPRIM
     Dosage: UNK, 1 TABLET, ORAL, 3 TIMES WEEKLY ( EVERY MONDAY, WEDNESDAY, AND FRIDAY)
     Route: 048
  21. TERIPARATIDE [Concomitant]
     Active Substance: TERIPARATIDE
     Indication: Osteoporosis
     Dosage: 20 UG, DAILY (2 YEARS)
     Route: 058
  22. TUMS [Concomitant]
     Active Substance: CALCIUM CARBONATE
     Dosage: UNK, DAILY 3 TABLETS
     Route: 048
  23. VITAMIN D3 [Concomitant]
     Active Substance: CHOLECALCIFEROL
     Dosage: 2000 UNITS, DAILY
     Route: 048
  24. VITAMIN D3 [Concomitant]
     Active Substance: CHOLECALCIFEROL
     Dosage: 3000 UNITS, DAILY
  25. HYDROMORPHONE [Concomitant]
     Active Substance: HYDROMORPHONE
     Dosage: 4 MG, AS NEEDED

REACTIONS (11)
  - Deafness neurosensory [Not Recovered/Not Resolved]
  - Condition aggravated [Not Recovered/Not Resolved]
  - Drug ineffective for unapproved indication [Unknown]
  - Off label use [Unknown]
  - Gastrointestinal disorder [Unknown]
  - Pain [Not Recovered/Not Resolved]
  - Musculoskeletal stiffness [Not Recovered/Not Resolved]
  - Ear dryness [Not Recovered/Not Resolved]
  - Rash [Unknown]
  - Ear pain [Not Recovered/Not Resolved]
  - Otorrhoea [Unknown]

NARRATIVE: CASE EVENT DATE: 20240101
